FAERS Safety Report 12439099 (Version 2)
Quarter: 2016Q3

REPORT INFORMATION
  Report Type: Spontaneous
  Country: US (occurrence: US)
  Receive Date: 20160606
  Receipt Date: 20160907
  Transmission Date: 20161109
  Serious: No
  Sender: FDA-Public Use
  Company Number: US-JNJFOC-20160529553

PATIENT
  Sex: Female

DRUGS (9)
  1. DURAGESIC [Suspect]
     Active Substance: FENTANYL
     Indication: ARTHRALGIA
     Route: 062
     Dates: start: 201503, end: 201604
  2. DURAGESIC [Suspect]
     Active Substance: FENTANYL
     Indication: SPINAL COLUMN STENOSIS
     Route: 062
     Dates: start: 201503, end: 201604
  3. DURAGESIC [Suspect]
     Active Substance: FENTANYL
     Indication: CYST
     Route: 062
     Dates: start: 201605
  4. DURAGESIC [Suspect]
     Active Substance: FENTANYL
     Indication: CYST
     Route: 062
     Dates: start: 201503, end: 201604
  5. DURAGESIC [Suspect]
     Active Substance: FENTANYL
     Indication: ARTHRALGIA
     Route: 062
     Dates: start: 201605
  6. DURAGESIC [Suspect]
     Active Substance: FENTANYL
     Indication: CYST
     Route: 062
     Dates: start: 201311, end: 201503
  7. DURAGESIC [Suspect]
     Active Substance: FENTANYL
     Indication: ARTHRALGIA
     Route: 062
     Dates: start: 201311, end: 201503
  8. DURAGESIC [Suspect]
     Active Substance: FENTANYL
     Indication: SPINAL COLUMN STENOSIS
     Route: 062
     Dates: start: 201311, end: 201503
  9. DURAGESIC [Suspect]
     Active Substance: FENTANYL
     Indication: SPINAL COLUMN STENOSIS
     Route: 062
     Dates: start: 201605

REACTIONS (5)
  - Product quality issue [Unknown]
  - Withdrawal syndrome [Unknown]
  - Wrong technique in product usage process [Unknown]
  - Back pain [Unknown]
  - Wrong technique in product usage process [Unknown]

NARRATIVE: CASE EVENT DATE: 201311
